FAERS Safety Report 11098720 (Version 1)
Quarter: 2015Q2

REPORT INFORMATION
  Report Type: Spontaneous
  Country: ES (occurrence: ES)
  Receive Date: 20150507
  Receipt Date: 20150507
  Transmission Date: 20150821
  Serious: Yes (Other)
  Sender: FDA-Public Use
  Company Number: PHHY2015ES049288

PATIENT
  Age: 82 Year
  Sex: Female

DRUGS (3)
  1. PRO ULCO [Concomitant]
     Indication: ABDOMINAL DISCOMFORT
     Route: 065
  2. ULUNAR BREEZHALER [Suspect]
     Active Substance: GLYCOPYRROLATE\INDACATEROL MALEATE
     Indication: RESPIRATORY DISTRESS
     Dosage: 1 DF, QD (85 INDACATEROL / 43 GLYCOPYRRONIUM MCG, 1 IN 1D)
     Route: 055
     Dates: start: 20150329, end: 20150414
  3. COVALOSARTAN [Concomitant]
     Indication: HYPERTENSION
     Dosage: 1 DF, QD
     Route: 048

REACTIONS (13)
  - Swelling face [Recovered/Resolved]
  - Nasal congestion [Recovered/Resolved]
  - Pruritus [Recovered/Resolved]
  - Cough [Recovered/Resolved]
  - Feeling abnormal [Unknown]
  - Off label use [Unknown]
  - Oropharyngeal pain [Recovered/Resolved]
  - Throat irritation [Recovered/Resolved]
  - Ocular hyperaemia [Recovered/Resolved]
  - Sneezing [Recovered/Resolved]
  - Respiratory distress [Recovering/Resolving]
  - Increased viscosity of bronchial secretion [Recovered/Resolved]
  - Dyspnoea [Unknown]

NARRATIVE: CASE EVENT DATE: 20150329
